FAERS Safety Report 18359958 (Version 1)
Quarter: 2020Q4

REPORT INFORMATION
  Report Type: Spontaneous
  Country: US (occurrence: US)
  Receive Date: 20201008
  Receipt Date: 20201008
  Transmission Date: 20210114
  Serious: No
  Sender: FDA-Public Use
  Company Number: US-MYLANLABS-2020M1082228

PATIENT
  Sex: Female
  Weight: 71 kg

DRUGS (2)
  1. PREDNISONE. [Suspect]
     Active Substance: PREDNISONE
     Indication: PRODUCT USED FOR UNKNOWN INDICATION
     Dosage: UNK
     Dates: start: 2020
  2. VALACYCLOVIR [Suspect]
     Active Substance: VALACYCLOVIR HYDROCHLORIDE
     Indication: FACIAL PARALYSIS
     Dosage: 2 DOSAGE FORM, TID (3 TIMES DAILY)
     Route: 048
     Dates: start: 20200831, end: 20200906

REACTIONS (3)
  - Gingival pain [Recovered/Resolved]
  - Pruritus [Recovering/Resolving]
  - Toothache [Recovered/Resolved]

NARRATIVE: CASE EVENT DATE: 2020
